FAERS Safety Report 14161841 (Version 3)
Quarter: 2017Q4

REPORT INFORMATION
  Report Type: Spontaneous
  Country: US (occurrence: US)
  Receive Date: 20171106
  Receipt Date: 20171205
  Transmission Date: 20180321
  Serious: Yes (Hospitalization)
  Sender: FDA-Public Use
  Company Number: US-BAYER-2017-208644

PATIENT
  Age: 62 Year
  Sex: Male
  Weight: 77 kg

DRUGS (2)
  1. ENZALUTAMIDE [Suspect]
     Active Substance: ENZALUTAMIDE
     Indication: PROSTATE CANCER
     Dosage: 160 MG, UNK
     Route: 048
     Dates: start: 20160401
  2. BAYER LOW DOSE [Suspect]
     Active Substance: ASPIRIN
     Indication: CARDIOVASCULAR EVENT PROPHYLAXIS
     Dosage: 81 MG, QD
     Route: 048
     Dates: start: 20170327

REACTIONS (12)
  - Asthenia [Recovering/Resolving]
  - Haemoglobin decreased [Recovering/Resolving]
  - Dizziness [Recovering/Resolving]
  - Melaena [Recovering/Resolving]
  - Frequent bowel movements [Recovering/Resolving]
  - Anaemia [Recovering/Resolving]
  - Fall [None]
  - Occult blood positive [Recovering/Resolving]
  - Haematochezia [Recovering/Resolving]
  - Fatigue [Recovering/Resolving]
  - Hyperhidrosis [Recovering/Resolving]
  - Polyp [Recovering/Resolving]

NARRATIVE: CASE EVENT DATE: 201710
